FAERS Safety Report 16139014 (Version 1)
Quarter: 2019Q2

REPORT INFORMATION
  Report Type: Spontaneous
  Country: GR (occurrence: GR)
  Receive Date: 20190401
  Receipt Date: 20190401
  Transmission Date: 20190711
  Serious: Yes (Hospitalization, Other)
  Sender: FDA-Public Use
  Company Number: GR-GLAXOSMITHKLINE-GR2019GSK033384

PATIENT
  Age: 70 Year
  Sex: Male

DRUGS (4)
  1. GLUCOFREE [Concomitant]
     Indication: BLOOD GLUCOSE INCREASED
     Dosage: UNK
  2. SEVIKAR [Concomitant]
     Active Substance: AMLODIPINE BESYLATE\OLMESARTAN MEDOXOMIL
     Indication: HYPERTENSION
     Dosage: UNK
  3. DUODART [Suspect]
     Active Substance: DUTASTERIDE\TAMSULOSIN
     Indication: BENIGN PROSTATIC HYPERPLASIA
     Dosage: UNK
  4. FISIOTENS [Concomitant]
     Active Substance: MOXONIDINE
     Indication: HYPERTENSION
     Dosage: UNK

REACTIONS (3)
  - Rash pruritic [Recovered/Resolved]
  - Erectile dysfunction [Unknown]
  - Prostatectomy [Unknown]
